FAERS Safety Report 4523341-6 (Version None)
Quarter: 2004Q4

REPORT INFORMATION
  Report Type: 
  Country: None (occurrence: None)
  Receive Date: 20041209
  Receipt Date: 20041130
  Transmission Date: 20050328
  Serious: Yes (Other)
  Sender: FDA-Public Use
  Company Number: 2004100388

PATIENT
  Age: 50 Year
  Sex: Female

DRUGS (2)
  1. NEURONTIN [Suspect]
     Indication: NEUROPATHIC PAIN
     Dosage: 900 MG (300 MG, 3 IN 1 D),
     Dates: start: 20030301
  2. PREDNISONE [Concomitant]

REACTIONS (3)
  - HIP ARTHROPLASTY [None]
  - OSTEOPOROSIS [None]
  - SHOULDER ARTHROPLASTY [None]
